FAERS Safety Report 11567817 (Version 3)
Quarter: 2016Q3

REPORT INFORMATION
  Report Type: Spontaneous
  Country: US (occurrence: US)
  Receive Date: 20150929
  Receipt Date: 20160728
  Transmission Date: 20161109
  Serious: Yes (Death)
  Sender: FDA-Public Use
  Company Number: US-ROCHE-1612699

PATIENT
  Age: 92 Year
  Sex: Female
  Weight: 49.03 kg

DRUGS (1)
  1. ESBRIET [Suspect]
     Active Substance: PIRFENIDONE
     Indication: IDIOPATHIC PULMONARY FIBROSIS
     Dosage: 2 CAPS TID
     Route: 048
     Dates: start: 20150518

REACTIONS (2)
  - Death [Fatal]
  - Fatigue [Unknown]

NARRATIVE: CASE EVENT DATE: 20150731
